FAERS Safety Report 20037492 (Version 1)
Quarter: 2021Q4

REPORT INFORMATION
  Report Type: Spontaneous
  Country: US (occurrence: US)
  Receive Date: 20211105
  Receipt Date: 20211105
  Transmission Date: 20220303
  Serious: Yes (Death, Other)
  Sender: FDA-Public Use
  Company Number: US-GLAXOSMITHKLINE-US2021GSK227081

PATIENT
  Sex: Male

DRUGS (4)
  1. ZANTAC [Suspect]
     Active Substance: RANITIDINE HYDROCHLORIDE
     Indication: Dyspepsia
     Dosage: TO BE SUPPLEMENTED
     Route: 065
     Dates: start: 201601, end: 202012
  2. ZANTAC [Suspect]
     Active Substance: RANITIDINE HYDROCHLORIDE
     Indication: Dyspepsia
     Dosage: TO BE SUPPLEMENTED
     Route: 065
     Dates: start: 201601, end: 202012
  3. RANITIDINE [Suspect]
     Active Substance: RANITIDINE
     Indication: Dyspepsia
     Dosage: TO BE SUPPLEMENTED
     Route: 065
     Dates: start: 201601, end: 202012
  4. RANITIDINE [Suspect]
     Active Substance: RANITIDINE
     Indication: Dyspepsia
     Dosage: TO BE SUPPLEMENTED
     Route: 065
     Dates: start: 201601, end: 202012

REACTIONS (1)
  - Hepatic cancer [Fatal]
